FAERS Safety Report 13896373 (Version 1)
Quarter: 2017Q3

REPORT INFORMATION
  Report Type: Spontaneous
  Country: US (occurrence: None)
  Receive Date: 20170815
  Receipt Date: 20170815
  Transmission Date: 20171127
  Serious: Yes (Other)
  Sender: FDA-Public Use
  Company Number: None

PATIENT
  Age: 16 Year
  Sex: Female

DRUGS (1)
  1. METHYLPHENIDATE ER 36MG [Suspect]
     Active Substance: METHYLPHENIDATE
     Dosage: 36 MG, QAM, ORAL
     Route: 048
     Dates: start: 20170809, end: 20170811

REACTIONS (2)
  - Product substitution issue [None]
  - Migraine [None]

NARRATIVE: CASE EVENT DATE: 20170811
